FAERS Safety Report 6223990-3 (Version None)
Quarter: 2009Q2

REPORT INFORMATION
  Report Type: 
  Country: None (occurrence: None)
  Receive Date: 20090612
  Receipt Date: 20090305
  Transmission Date: 20091009
  Serious: No
  Sender: FDA-Public Use
  Company Number: US-ABBOTT-09P-163-0561157-00

PATIENT
  Sex: Female
  Weight: 49.94 kg

DRUGS (6)
  1. HUMIRA [Suspect]
     Indication: TUMOUR NECROSIS FACTOR RECEPTOR-ASSOCIATED PERIODIC SYNDROME
     Route: 058
     Dates: start: 20081201
  2. HUMIRA [Suspect]
     Dosage: SWITCHED TO PEN
     Route: 058
  3. SYNTHROID [Concomitant]
     Indication: HYPOTHYROIDISM
     Route: 048
  4. FEMCON FE [Concomitant]
     Indication: ENDOMETRIOSIS
     Route: 048
  5. MORPHINE SULFATE [Concomitant]
     Indication: PAIN
     Dates: start: 20030121
  6. ZOLPIDEM TARTRATE [Concomitant]
     Indication: SLEEP DISORDER
     Route: 048

REACTIONS (2)
  - INJECTION SITE IRRITATION [None]
  - PYREXIA [None]
